FAERS Safety Report 6091625-9 (Version None)
Quarter: 2009Q1

REPORT INFORMATION
  Report Type: 
  Country: None (occurrence: None)
  Receive Date: 20090225
  Receipt Date: 20080306
  Transmission Date: 20090719
  Serious: No
  Sender: FDA-Public Use
  Company Number: A0713849A

PATIENT
  Age: 55 Year
  Sex: Female

DRUGS (1)
  1. VALTREX [Suspect]
     Indication: POST HERPETIC NEURALGIA
     Dosage: 1000MG THREE TIMES PER DAY
     Route: 048

REACTIONS (1)
  - TINNITUS [None]
